FAERS Safety Report 9550531 (Version 1)
Quarter: 2013Q3

REPORT INFORMATION
  Report Type: Spontaneous
  Country: US (occurrence: US)
  Receive Date: 20130924
  Receipt Date: 20130924
  Transmission Date: 20140515
  Serious: No
  Sender: FDA-Public Use
  Company Number: US-SANOFI-AVENTIS-2013SA029334

PATIENT
  Age: 51 Year
  Sex: Female
  Weight: 69.85 kg

DRUGS (7)
  1. AUBAGIO [Suspect]
     Indication: MULTIPLE SCLEROSIS
     Route: 048
     Dates: start: 20130313
  2. BUPROPION [Concomitant]
     Indication: MULTIPLE SCLEROSIS
  3. BUPROPION [Concomitant]
     Indication: MEMORY IMPAIRMENT
  4. ESTRADIOL [Concomitant]
     Indication: HYSTERECTOMY
     Dates: start: 2005
  5. DONEPEZIL [Concomitant]
     Indication: MEMORY IMPAIRMENT
     Dates: start: 201301
  6. FESOTERODINE [Concomitant]
     Indication: INCONTINENCE
     Dates: start: 201110
  7. ASPIRIN [Concomitant]

REACTIONS (6)
  - Headache [Recovered/Resolved]
  - Fatigue [Not Recovered/Not Resolved]
  - Sleep disorder [Not Recovered/Not Resolved]
  - Diarrhoea [Not Recovered/Not Resolved]
  - Nausea [Recovered/Resolved]
  - Paraesthesia [Not Recovered/Not Resolved]
